FAERS Safety Report 6899183-3 (Version None)
Quarter: 2010Q3

REPORT INFORMATION
  Report Type: 
  Country: None (occurrence: None)
  Receive Date: 20100802
  Receipt Date: 20080211
  Transmission Date: 20110219
  Serious: No
  Sender: FDA-Public Use
  Company Number: US-PFIZER INC-2007087772

PATIENT
  Sex: Female
  Weight: 56.818 kg

DRUGS (2)
  1. LYRICA [Suspect]
     Indication: FIBROMYALGIA
     Dates: start: 20071011, end: 20071015
  2. AMBIEN [Concomitant]
     Indication: SLEEP DISORDER

REACTIONS (2)
  - BALANCE DISORDER [None]
  - DIZZINESS [None]
